FAERS Safety Report 25187133 (Version 2)
Quarter: 2025Q2

REPORT INFORMATION
  Report Type: Spontaneous
  Country: US (occurrence: US)
  Receive Date: 20250411
  Receipt Date: 20250612
  Transmission Date: 20250716
  Serious: No
  Sender: ELI LILLY AND COMPANY
  Company Number: US-ELI_LILLY_AND_COMPANY-US202504009539

PATIENT
  Age: 54 Year

DRUGS (31)
  1. ZEPBOUND [Suspect]
     Active Substance: TIRZEPATIDE
     Indication: Weight control
     Route: 058
  2. ZEPBOUND [Suspect]
     Active Substance: TIRZEPATIDE
     Indication: Insulin resistance
  3. ZEPBOUND [Suspect]
     Active Substance: TIRZEPATIDE
     Indication: Cardiovascular disorder
  4. ZEPBOUND [Suspect]
     Active Substance: TIRZEPATIDE
     Indication: Polycystic ovarian syndrome
  5. ZEPBOUND [Suspect]
     Active Substance: TIRZEPATIDE
     Indication: Endometriosis
  6. ZEPBOUND [Suspect]
     Active Substance: TIRZEPATIDE
     Indication: Weight control
     Route: 058
  7. ZEPBOUND [Suspect]
     Active Substance: TIRZEPATIDE
     Indication: Weight control
     Route: 058
  8. ZEPBOUND [Suspect]
     Active Substance: TIRZEPATIDE
     Indication: Weight control
     Route: 058
  9. ZEPBOUND [Suspect]
     Active Substance: TIRZEPATIDE
     Indication: Weight control
     Route: 058
  10. ZEPBOUND [Suspect]
     Active Substance: TIRZEPATIDE
     Indication: Weight control
     Route: 058
  11. ZEPBOUND [Suspect]
     Active Substance: TIRZEPATIDE
     Indication: Insulin resistance
     Route: 058
  12. ZEPBOUND [Suspect]
     Active Substance: TIRZEPATIDE
     Indication: Insulin resistance
     Route: 058
  13. ZEPBOUND [Suspect]
     Active Substance: TIRZEPATIDE
     Indication: Insulin resistance
     Route: 058
  14. ZEPBOUND [Suspect]
     Active Substance: TIRZEPATIDE
     Indication: Insulin resistance
     Route: 058
  15. ZEPBOUND [Suspect]
     Active Substance: TIRZEPATIDE
     Indication: Insulin resistance
     Route: 058
  16. ZEPBOUND [Suspect]
     Active Substance: TIRZEPATIDE
     Indication: Cardiovascular disorder
  17. ZEPBOUND [Suspect]
     Active Substance: TIRZEPATIDE
     Indication: Cardiovascular disorder
  18. ZEPBOUND [Suspect]
     Active Substance: TIRZEPATIDE
     Indication: Cardiovascular disorder
  19. ZEPBOUND [Suspect]
     Active Substance: TIRZEPATIDE
     Indication: Cardiovascular disorder
  20. ZEPBOUND [Suspect]
     Active Substance: TIRZEPATIDE
     Indication: Cardiovascular disorder
  21. ZEPBOUND [Suspect]
     Active Substance: TIRZEPATIDE
     Indication: Polycystic ovarian syndrome
  22. ZEPBOUND [Suspect]
     Active Substance: TIRZEPATIDE
     Indication: Polycystic ovarian syndrome
  23. ZEPBOUND [Suspect]
     Active Substance: TIRZEPATIDE
     Indication: Polycystic ovarian syndrome
  24. ZEPBOUND [Suspect]
     Active Substance: TIRZEPATIDE
     Indication: Polycystic ovarian syndrome
  25. ZEPBOUND [Suspect]
     Active Substance: TIRZEPATIDE
     Indication: Polycystic ovarian syndrome
  26. ZEPBOUND [Suspect]
     Active Substance: TIRZEPATIDE
     Indication: Endometriosis
  27. ZEPBOUND [Suspect]
     Active Substance: TIRZEPATIDE
     Indication: Endometriosis
  28. ZEPBOUND [Suspect]
     Active Substance: TIRZEPATIDE
     Indication: Endometriosis
  29. ZEPBOUND [Suspect]
     Active Substance: TIRZEPATIDE
     Indication: Endometriosis
  30. ZEPBOUND [Suspect]
     Active Substance: TIRZEPATIDE
     Indication: Endometriosis
  31. EMGALITY [Concomitant]
     Active Substance: GALCANEZUMAB-GNLM
     Indication: Product used for unknown indication

REACTIONS (3)
  - Incorrect dose administered [Unknown]
  - Injection site pain [Recovered/Resolved]
  - Injection site erythema [Unknown]
